FAERS Safety Report 6939464-8 (Version None)
Quarter: 2010Q3

REPORT INFORMATION
  Report Type: 
  Country: None (occurrence: None)
  Receive Date: 20100819
  Receipt Date: 20100816
  Transmission Date: 20110219
  Serious: Yes (Disabling)
  Sender: FDA-Public Use
  Company Number: GRT 2010-14550

PATIENT
  Age: 92 Year
  Sex: Male
  Weight: 60 kg

DRUGS (2)
  1. LIDOCAINE HCL [Suspect]
     Indication: CANCER PAIN
  2. LIDOCAINE HCL [Suspect]
     Indication: PROSTATE CANCER

REACTIONS (3)
  - DEPRESSED MOOD [None]
  - INAPPROPRIATE SCHEDULE OF DRUG ADMINISTRATION [None]
  - MALAISE [None]
